FAERS Safety Report 8048607-7 (Version None)
Quarter: 2012Q1

REPORT INFORMATION
  Report Type: 
  Country: None (occurrence: None)
  Receive Date: 20120117
  Receipt Date: 20120106
  Transmission Date: 20120608
  Serious: Yes (Other)
  Sender: FDA-Public Use
  Company Number: GB-PFIZER INC-2012009913

PATIENT
  Age: 78 Year
  Sex: Male

DRUGS (5)
  1. SIMVASTATIN [Concomitant]
     Dosage: UNK
     Dates: start: 20110519
  2. BISOPROLOL FUMARATE [Concomitant]
     Dosage: UNK
     Dates: start: 20110319
  3. WARFARIN [Concomitant]
     Dosage: UNK
     Dates: start: 20110519
  4. RANITIDINE [Concomitant]
     Dosage: UNK
     Dates: start: 20110519
  5. AMIODARONE HCL [Suspect]
     Indication: ARRHYTHMIA
     Dosage: 200 MG, 1X/DAY
     Route: 048
     Dates: start: 20110519

REACTIONS (1)
  - RED BLOOD CELL SEDIMENTATION RATE INCREASED [None]
